FAERS Safety Report 4900945-X (Version None)
Quarter: 2006Q1

REPORT INFORMATION
  Report Type: 
  Country: None (occurrence: None)
  Receive Date: 20060203
  Receipt Date: 20050408
  Transmission Date: 20060701
  Serious: Yes (Death, Hospitalization, Other)
  Sender: FDA-Public Use
  Company Number: US-MERCK-0504USA01662

PATIENT
  Age: 85 Year
  Sex: Female
  Weight: 50 kg

DRUGS (2)
  1. VIOXX [Suspect]
     Indication: RHEUMATOID ARTHRITIS
     Route: 048
     Dates: start: 19990501, end: 20030721
  2. VIOXX [Suspect]
     Route: 048
     Dates: start: 19990501, end: 20030721

REACTIONS (4)
  - CARDIAC FAILURE CONGESTIVE [None]
  - CEREBROVASCULAR ACCIDENT [None]
  - OVERDOSE [None]
  - RENAL FAILURE CHRONIC [None]
